FAERS Safety Report 20598753 (Version 2)
Quarter: 2022Q1

REPORT INFORMATION
  Report Type: Spontaneous
  Country: US (occurrence: None)
  Receive Date: 20220315
  Receipt Date: 20220316
  Transmission Date: 20220423
  Serious: No
  Sender: FDA-Public Use
  Company Number: US-ROCHE-2896202

PATIENT
  Sex: Female

DRUGS (1)
  1. XOLAIR [Suspect]
     Active Substance: OMALIZUMAB
     Indication: Chronic spontaneous urticaria
     Route: 058
     Dates: start: 20201231, end: 20210818

REACTIONS (4)
  - Paraesthesia [Unknown]
  - Urticaria [Unknown]
  - Hypoaesthesia [Unknown]
  - Tryptase increased [Unknown]
